FAERS Safety Report 7023956-X (Version None)
Quarter: 2010Q3

REPORT INFORMATION
  Report Type: 
  Country: None (occurrence: None)
  Receive Date: 20100929
  Receipt Date: 20100916
  Transmission Date: 20110219
  Serious: Yes (Hospitalization, Other)
  Sender: FDA-Public Use
  Company Number: 018937

PATIENT
  Sex: Male
  Weight: 83.4619 kg

DRUGS (3)
  1. LACOSAMIDE [Suspect]
     Indication: EPILEPSY
     Dosage: 400 MG ORAL
     Route: 048
     Dates: start: 20100826
  2. NEURONTIN [Concomitant]
  3. TOPAMAX [Concomitant]

REACTIONS (2)
  - CONVULSION [None]
  - INSOMNIA [None]
